FAERS Safety Report 5794114-1 (Version None)
Quarter: 2008Q2

REPORT INFORMATION
  Report Type: 
  Country: None (occurrence: None)
  Receive Date: 20080627
  Receipt Date: 20080617
  Transmission Date: 20081010
  Serious: Yes (Hospitalization)
  Sender: FDA-Public Use
  Company Number: ES-PFIZER INC-2008050576

PATIENT
  Age: 55 Year
  Sex: Male

DRUGS (2)
  1. ZYVOXID [Suspect]
     Indication: PNEUMONIA
     Dosage: DAILY DOSE:1200MG
     Route: 042
     Dates: start: 20080125, end: 20080201
  2. ZYVOXID TABLET [Suspect]
     Indication: PNEUMONIA
     Route: 048
     Dates: start: 20080201, end: 20080227

REACTIONS (1)
  - RENAL FAILURE ACUTE [None]
